FAERS Safety Report 5578754-0 (Version None)
Quarter: 2007Q4

REPORT INFORMATION
  Report Type: 
  Country: None (occurrence: None)
  Receive Date: 20071227
  Receipt Date: 20071216
  Transmission Date: 20080405
  Serious: Yes (Other)
  Sender: FDA-Public Use
  Company Number: CHPA2007US13732

PATIENT
  Age: 43 Year
  Sex: Female

DRUGS (1)
  1. EX-LAX MAX STR LAX PILLS SENNA (NCH)(SENNA GLYCOSIDES (CA SALTS OF PUR [Suspect]
     Indication: CONSTIPATION
     Dosage: 50 MG, ONCE/SINGLE, ORAL
     Route: 048
     Dates: start: 20071215

REACTIONS (1)
  - HAEMATOCHEZIA [None]
